FAERS Safety Report 10465686 (Version 2)
Quarter: 2014Q3

REPORT INFORMATION
  Report Type: Report from Study
  Country: US (occurrence: US)
  Receive Date: 20140919
  Receipt Date: 20140919
  Transmission Date: 20150326
  Serious: Yes (Other)
  Sender: FDA-Public Use
  Company Number: US-ALEXION PHARMACEUTICALS INC-A201102419

PATIENT

DRUGS (1)
  1. SOLIRIS [Suspect]
     Active Substance: ECULIZUMAB
     Indication: PAROXYSMAL NOCTURNAL HAEMOGLOBINURIA

REACTIONS (14)
  - Haemoglobin decreased [Unknown]
  - Nausea [Unknown]
  - Pain in extremity [Unknown]
  - Infusion related reaction [Unknown]
  - Uterine leiomyoma [Unknown]
  - Dyspnoea [Unknown]
  - Headache [Unknown]
  - Transfusion [Unknown]
  - Fatigue [Unknown]
  - Quality of life decreased [Unknown]
  - Abdominal pain [Unknown]
  - Gallbladder disorder [Unknown]
  - Drug hypersensitivity [Unknown]
  - Haemolysis [Unknown]
